FAERS Safety Report 19836642 (Version 1)
Quarter: 2021Q3

REPORT INFORMATION
  Report Type: Spontaneous
  Country: US (occurrence: US)
  Receive Date: 20210915
  Receipt Date: 20210915
  Transmission Date: 20211014
  Serious: No
  Sender: FDA-Public Use
  Company Number: US-BIOHAVEN PHARMACEUTICALS-2021BHV00855

PATIENT
  Age: 58 Year
  Sex: Female

DRUGS (8)
  1. NURTEC ODT [Suspect]
     Active Substance: RIMEGEPANT SULFATE
     Indication: MIGRAINE
     Dosage: 75 MG, EVERY 48 HOURS
     Route: 060
     Dates: start: 202011
  2. IBUPROFEN. [Concomitant]
     Active Substance: IBUPROFEN
  3. PEPCID [Concomitant]
     Active Substance: FAMOTIDINE
  4. FEVERFEW [Concomitant]
     Active Substance: FEVERFEW
  5. TYLENOL [Concomitant]
     Active Substance: ACETAMINOPHEN
  6. RIBOFLAVIN [Concomitant]
     Active Substance: RIBOFLAVIN
  7. MAGNESIUM [Concomitant]
     Active Substance: MAGNESIUM
  8. CO (COEZNYME) Q10 [Concomitant]

REACTIONS (4)
  - Therapeutic product effect incomplete [Not Recovered/Not Resolved]
  - Drug ineffective [Not Recovered/Not Resolved]
  - Migraine [Unknown]
  - Therapeutic product effect delayed [Not Recovered/Not Resolved]

NARRATIVE: CASE EVENT DATE: 202011
